FAERS Safety Report 22026680 (Version 1)
Quarter: 2023Q1

REPORT INFORMATION
  Report Type: Spontaneous
  Country: US (occurrence: None)
  Receive Date: 20230223
  Receipt Date: 20230223
  Transmission Date: 20230417
  Serious: No
  Sender: FDA-Public Use
  Company Number: US-ROCHE-3182586

PATIENT
  Sex: Male

DRUGS (1)
  1. XOLAIR [Suspect]
     Active Substance: OMALIZUMAB
     Indication: Asthma
     Dosage: 2 INJECTIONS OF 150MG, AND 1 IN INJECTION OF  75MG INJECTION
     Route: 065
     Dates: start: 201606

REACTIONS (2)
  - Myopia [Unknown]
  - Hypermetropia [Unknown]
